FAERS Safety Report 5283682-4 (Version None)
Quarter: 2007Q2

REPORT INFORMATION
  Report Type: 
  Country: None (occurrence: None)
  Receive Date: 20070402
  Receipt Date: 20070402
  Transmission Date: 20071010
  Serious: Yes (Life-Threatening, Other)
  Sender: FDA-Public Use
  Company Number: DEWYE507627MAR06

PATIENT
  Sex: Female
  Weight: 65 kg

DRUGS (3)
  1. TIGECYCLINE [Suspect]
     Indication: ENTEROCOCCAL INFECTION
     Dosage: 100 MG
     Route: 042
     Dates: start: 20060318, end: 20060326
  2. TIGECYCLINE [Interacting]
     Indication: SEPSIS
  3. TACROLIMUS [Interacting]
     Indication: PROPHYLAXIS AGAINST TRANSPLANT REJECTION
     Dosage: 15 MG
     Route: 048
     Dates: start: 20051226, end: 20060411

REACTIONS (7)
  - CHILLS [None]
  - COMA [None]
  - DRUG INTERACTION [None]
  - DYSKINESIA [None]
  - IMMUNOSUPPRESSANT DRUG LEVEL INCREASED [None]
  - MYOCLONUS [None]
  - NEUROLOGICAL SYMPTOM [None]
